FAERS Safety Report 7762459-1 (Version None)
Quarter: 2011Q3

REPORT INFORMATION
  Report Type: 
  Country: None (occurrence: None)
  Receive Date: 20110920
  Receipt Date: 20110909
  Transmission Date: 20111222
  Serious: Yes (Hospitalization)
  Sender: FDA-Public Use
  Company Number: US-JNJFOC-20110812336

PATIENT
  Sex: Female
  Weight: 28.1 kg

DRUGS (4)
  1. MESALAMINE [Concomitant]
     Route: 048
  2. REMICADE [Suspect]
     Indication: INFLAMMATORY BOWEL DISEASE
     Route: 042
     Dates: start: 20110413
  3. BALSALAZIDE DISODIUM [Concomitant]
  4. PROTON PUMP INHIBITOR [Concomitant]

REACTIONS (1)
  - COLITIS ULCERATIVE [None]
